FAERS Safety Report 12996261 (Version 1)
Quarter: 2016Q4

REPORT INFORMATION
  Report Type: Other
  Country: ES (occurrence: ES)
  Receive Date: 20161203
  Receipt Date: 20161203
  Transmission Date: 20170207
  Serious: Yes (Hospitalization)
  Sender: FDA-Public Use
  Company Number: ES-HETERO LABS LTD-1060362

PATIENT
  Age: 51 Year
  Sex: Male

DRUGS (3)
  1. HYDROCHLOROTHIAZIDE. [Suspect]
     Active Substance: HYDROCHLOROTHIAZIDE
     Route: 065
  2. OMEPRAZOLE. [Suspect]
     Active Substance: OMEPRAZOLE
     Route: 065
  3. VALSARTAN. [Suspect]
     Active Substance: VALSARTAN
     Indication: HYPERTENSION
     Route: 065

REACTIONS (4)
  - Cyclic vomiting syndrome [Recovering/Resolving]
  - Cerebral vasoconstriction [Recovering/Resolving]
  - Wernicke^s encephalopathy [Recovering/Resolving]
  - Hypomagnesaemia [Recovering/Resolving]
